FAERS Safety Report 17092452 (Version 1)
Quarter: 2019Q4

REPORT INFORMATION
  Report Type: Spontaneous
  Country: CR (occurrence: CR)
  Receive Date: 20191129
  Receipt Date: 20191129
  Transmission Date: 20200122
  Serious: Yes (Other)
  Sender: FDA-Public Use
  Company Number: CR-ALLERGAN-1948345US

PATIENT
  Sex: Male

DRUGS (2)
  1. ZYPRED [Suspect]
     Active Substance: GATIFLOXACIN\PREDNISOLONE ACETATE
     Indication: POST PROCEDURAL INFLAMMATION
  2. ZYPRED [Suspect]
     Active Substance: GATIFLOXACIN\PREDNISOLONE ACETATE
     Indication: INFECTION PROPHYLAXIS
     Dosage: UNK
     Route: 047
     Dates: start: 201911, end: 201911

REACTIONS (1)
  - Impaired healing [Recovering/Resolving]

NARRATIVE: CASE EVENT DATE: 201911
